FAERS Safety Report 12189943 (Version 1)
Quarter: 2016Q1

REPORT INFORMATION
  Report Type: Spontaneous
  Country: US (occurrence: None)
  Receive Date: 20160317
  Receipt Date: 20160317
  Transmission Date: 20160526
  Serious: Yes (Hospitalization)
  Sender: FDA-Public Use
  Company Number: None

PATIENT
  Age: 45 Year
  Sex: Male
  Weight: 94.8 kg

DRUGS (1)
  1. VIVITROL [Suspect]
     Active Substance: NALTREXONE
     Route: 030
     Dates: start: 20160223

REACTIONS (5)
  - Injection site reaction [None]
  - Pain [None]
  - Injection site pustule [None]
  - Injection site swelling [None]
  - Influenza like illness [None]

NARRATIVE: CASE EVENT DATE: 20160316
